FAERS Safety Report 21819599 (Version 2)
Quarter: 2023Q1

REPORT INFORMATION
  Report Type: Spontaneous
  Country: US (occurrence: US)
  Receive Date: 20230104
  Receipt Date: 20230123
  Transmission Date: 20230418
  Serious: No
  Sender: FDA-Public Use
  Company Number: US-SA-SAC20230103000301

PATIENT
  Age: 75 Year
  Sex: Female

DRUGS (5)
  1. DUPIXENT [Suspect]
     Active Substance: DUPILUMAB
     Indication: Eosinophilia
     Dosage: 300 MG, QOW
     Route: 058
     Dates: start: 20221114
  2. BREO ELLIPTA [Concomitant]
     Active Substance: FLUTICASONE FUROATE\VILANTEROL TRIFENATATE
     Dosage: BREO ELLIPTA AEP 200-25MC
  3. CLONAZEPAM [Concomitant]
     Active Substance: CLONAZEPAM
  4. NAPROXEN [Concomitant]
     Active Substance: NAPROXEN
  5. SUMATRIPTAN [Concomitant]
     Active Substance: SUMATRIPTAN

REACTIONS (10)
  - Headache [Recovered/Resolved]
  - Infection [Recovered/Resolved]
  - Toothache [Recovered/Resolved]
  - Eye pruritus [Recovered/Resolved]
  - Groin pain [Recovered/Resolved]
  - Vertigo [Recovered/Resolved]
  - Nausea [Recovered/Resolved]
  - Tooth disorder [Recovered/Resolved]
  - Visual impairment [Unknown]
  - Product use in unapproved indication [Unknown]

NARRATIVE: CASE EVENT DATE: 20221114
